FAERS Safety Report 14382279 (Version 2)
Quarter: 2018Q1

REPORT INFORMATION
  Report Type: Spontaneous
  Country: FR (occurrence: FR)
  Receive Date: 20180112
  Receipt Date: 20180312
  Transmission Date: 20180509
  Serious: Yes (Hospitalization)
  Sender: FDA-Public Use
  Company Number: FR-PFIZER INC-2018010629

PATIENT
  Age: 27 Year
  Sex: Female
  Weight: 36.5 kg

DRUGS (5)
  1. VINCRISTINE SULFATE. [Suspect]
     Active Substance: VINCRISTINE SULFATE
     Dosage: 13.8 MG, UNK
     Route: 042
     Dates: start: 20161107, end: 20170109
  2. CARBOPLATINE HOSPIRA [Suspect]
     Active Substance: CARBOPLATIN
     Dosage: 1990 MG, UNK
     Route: 042
     Dates: start: 20161107, end: 20161220
  3. ETOPOSIDE. [Suspect]
     Active Substance: ETOPOSIDE
     Dosage: 1380 MG, UNK
     Route: 042
     Dates: start: 20161108, end: 20170109
  4. CISPLATIN. [Suspect]
     Active Substance: CISPLATIN
     Dosage: 308 MG, UNK
     Route: 042
     Dates: start: 20161117, end: 20161231
  5. ENDOXAN [Suspect]
     Active Substance: CYCLOPHOSPHAMIDE
     Dosage: 4180 MG, UNK
     Route: 042
     Dates: start: 20161126, end: 20170110

REACTIONS (2)
  - Acute myeloid leukaemia [Not Recovered/Not Resolved]
  - Second primary malignancy [Not Recovered/Not Resolved]

NARRATIVE: CASE EVENT DATE: 20171215
